FAERS Safety Report 23273160 (Version 1)
Quarter: 2023Q4

REPORT INFORMATION
  Report Type: Spontaneous
  Country: GR (occurrence: None)
  Receive Date: 20231206
  Receipt Date: 20231206
  Transmission Date: 20240110
  Serious: Yes (Death)
  Sender: FDA-Public Use
  Company Number: None

PATIENT
  Age: 32 Year
  Sex: Female
  Weight: 85 kg

DRUGS (2)
  1. KETAMIN [Suspect]
     Active Substance: KETAMINE
  2. FENTANYL [Suspect]
     Active Substance: FENTANYL\FENTANYL CITRATE

REACTIONS (4)
  - Headache [None]
  - Loss of consciousness [None]
  - Fall [None]
  - Unevaluable event [None]

NARRATIVE: CASE EVENT DATE: 20200215
